FAERS Safety Report 9602544 (Version 2)
Quarter: 2013Q4

REPORT INFORMATION
  Report Type: Spontaneous
  Country: US (occurrence: US)
  Receive Date: 20131007
  Receipt Date: 20131121
  Transmission Date: 20140711
  Serious: No
  Sender: FDA-Public Use
  Company Number: US-PFIZER INC-2013283534

PATIENT
  Age: 62 Year
  Sex: Female
  Weight: 90.7 kg

DRUGS (5)
  1. LYRICA [Suspect]
     Indication: ARTHRITIS
     Dosage: 75 MG, 3X/DAY
     Dates: start: 2012, end: 20130831
  2. LYRICA [Suspect]
     Indication: NERVE INJURY
  3. PREDNISONE [Suspect]
     Indication: NERVE INJURY
     Dosage: UNK
  4. GABAPENTIN [Suspect]
     Indication: NERVE INJURY
     Dosage: UNK
  5. BENICAR HCT [Concomitant]
     Indication: HYPERTENSION
     Dosage: 25/40 MG, 1X/DAY

REACTIONS (7)
  - Off label use [Unknown]
  - Gait disturbance [Not Recovered/Not Resolved]
  - Pain [Not Recovered/Not Resolved]
  - Hypoaesthesia [Not Recovered/Not Resolved]
  - Malaise [Not Recovered/Not Resolved]
  - Feeling abnormal [Not Recovered/Not Resolved]
  - Drug ineffective [Unknown]
